FAERS Safety Report 7883947-3 (Version None)
Quarter: 2011Q4

REPORT INFORMATION
  Report Type: 
  Country: None (occurrence: None)
  Receive Date: 20111102
  Receipt Date: 20111026
  Transmission Date: 20120403
  Serious: Yes (Other)
  Sender: FDA-Public Use
  Company Number: DK-JNJFOC-20111006808

PATIENT
  Age: 57 Year
  Sex: Female

DRUGS (1)
  1. NICORETTE [Suspect]
     Indication: SMOKING CESSATION THERAPY
     Route: 050
     Dates: start: 20110711

REACTIONS (3)
  - PRODUCT QUALITY ISSUE [None]
  - DEPENDENCE [None]
  - WITHDRAWAL SYNDROME [None]
